FAERS Safety Report 13014246 (Version 1)
Quarter: 2016Q4

REPORT INFORMATION
  Report Type: Spontaneous
  Country: IT (occurrence: IT)
  Receive Date: 20161209
  Receipt Date: 20161209
  Transmission Date: 20170207
  Serious: Yes (Hospitalization)
  Sender: FDA-Public Use
  Company Number: IT-BAYER-2016-231431

PATIENT
  Age: 86 Year
  Sex: Female

DRUGS (9)
  1. OMEPRAZOLE. [Suspect]
     Active Substance: OMEPRAZOLE
  2. PLETAL [Suspect]
     Active Substance: CILOSTAZOL
  3. CARDIOASPIRIN 100 MG [Suspect]
     Active Substance: ASPIRIN
  4. TRIATEC [Suspect]
     Active Substance: RAMIPRIL
  5. ADALAT CRONO 30 MG [Suspect]
     Active Substance: NIFEDIPINE
  6. FUROSEMIDE. [Suspect]
     Active Substance: FUROSEMIDE
  7. CARDURA [Suspect]
     Active Substance: DOXAZOSIN MESYLATE
  8. SOTALOL. [Suspect]
     Active Substance: SOTALOL
  9. FUROSEMIDE. [Suspect]
     Active Substance: FUROSEMIDE
     Dosage: 1 DF, QOD

REACTIONS (2)
  - Asthenia [Unknown]
  - Hypotension [Unknown]

NARRATIVE: CASE EVENT DATE: 20160413
